FAERS Safety Report 15332664 (Version 3)
Quarter: 2018Q4

REPORT INFORMATION
  Report Type: Report from Study
  Country: None (occurrence: US)
  Receive Date: 20180830
  Receipt Date: 20181029
  Transmission Date: 20190204
  Serious: Yes (Other)
  Sender: FDA-Public Use
  Company Number: US-ABBVIE-18K-163-2463115-00

PATIENT
  Sex: Male

DRUGS (1)
  1. HUMIRA [Suspect]
     Active Substance: ADALIMUMAB
     Indication: CROHN^S DISEASE
     Route: 058

REACTIONS (5)
  - Fatigue [Recovering/Resolving]
  - Frequent bowel movements [Recovering/Resolving]
  - Breast cyst [Unknown]
  - Hepatic enzyme increased [Recovered/Resolved]
  - Therapeutic response shortened [Recovering/Resolving]
